FAERS Safety Report 19036087 (Version 1)
Quarter: 2021Q1

REPORT INFORMATION
  Report Type: Spontaneous
  Country: NL (occurrence: NL)
  Receive Date: 20210321
  Receipt Date: 20210321
  Transmission Date: 20210420
  Serious: Yes (Life-Threatening)
  Sender: FDA-Public Use
  Company Number: NL-TEVA-2021-NL-1891353

PATIENT
  Age: 45 Year
  Sex: Female
  Weight: 93 kg

DRUGS (5)
  1. CISPLATINE INFUUS / BRAND NAME NOT SPECIFIED [Suspect]
     Active Substance: CISPLATIN
     Indication: CERVIX CARCINOMA
     Dosage: UNIT DOSE 1 DOSAGE FORMS ,WEEKLY
     Dates: start: 20210216, end: 20210216
  2. ONDANSETRON SMELTTABLET 4MG / BRAND NAME NOT SPECIFIED [Concomitant]
     Dosage: MELTING TABLET, 4 MG (MILLIGRAM),THERAPY START DATE :ASKU,THERAPY END DATE :ASKU
  3. METOCLOPRAMIDE TABLET 10MG / BRAND NAME NOT SPECIFIED [Concomitant]
     Active Substance: METOCLOPRAMIDE
     Dosage: 10 MG (MILLIGRAM),THERAPY START DATE :ASKU,THERAPY END DATE :ASKU
  4. DEXAMETHASON CAPSULE  4MG / BRAND NAME NOT SPECIFIED [Concomitant]
     Dosage: 4 MG (MILLIGRAM),THERAPY START DATE :ASKU,THERAPY END DATE :ASKU
  5. ETHINYLESTRADIOL/LEVONORGESTREL TABLET 30/150UG / MICROGYNON 30 TABLET [Concomitant]
     Dosage: UNIT DOSE :1 DOSAGE FORMS ,30/150 UG (MICROGRAM),THERAPY START DATE :ASKU,THERAPY END DATE :ASKU

REACTIONS (1)
  - Intestinal ischaemia [Recovering/Resolving]

NARRATIVE: CASE EVENT DATE: 20210217
